FAERS Safety Report 5016618-1 (Version None)
Quarter: 2006Q2

REPORT INFORMATION
  Report Type: 
  Country: None (occurrence: None)
  Receive Date: 20060602
  Receipt Date: 20060526
  Transmission Date: 20061013
  Serious: Yes (Other)
  Sender: FDA-Public Use
  Company Number: GB-GLAXOSMITHKLINE-B0425340A

PATIENT
  Age: 77 Year
  Sex: Female

DRUGS (6)
  1. SEREVENT [Suspect]
     Indication: CHRONIC OBSTRUCTIVE PULMONARY DISEASE
     Dosage: 50MCG TWICE PER DAY
     Route: 055
     Dates: start: 20060208, end: 20060303
  2. OXIS [Suspect]
     Indication: CHRONIC OBSTRUCTIVE PULMONARY DISEASE
     Route: 065
     Dates: start: 20060317, end: 20060323
  3. THIAMINE [Concomitant]
     Dosage: 100MG PER DAY
     Route: 048
     Dates: start: 20020319
  4. CLOPIDOGREL [Concomitant]
     Dosage: 75MG PER DAY
     Route: 048
     Dates: start: 20020319
  5. SALBUTAMOL [Concomitant]
     Indication: CHRONIC OBSTRUCTIVE PULMONARY DISEASE
     Dosage: 200MCG AS REQUIRED
     Route: 048
     Dates: start: 20011016
  6. IPRATROPIUM BROMIDE [Concomitant]
     Indication: CHRONIC OBSTRUCTIVE PULMONARY DISEASE
     Dosage: 40MCG TWICE PER DAY
     Route: 048
     Dates: start: 20041203

REACTIONS (1)
  - ARTHRITIS REACTIVE [None]
